FAERS Safety Report 4738405-1 (Version None)
Quarter: 2005Q3

REPORT INFORMATION
  Report Type: 
  Country: None (occurrence: None)
  Receive Date: 20050809
  Receipt Date: 20050729
  Transmission Date: 20060218
  Serious: Yes (Death)
  Sender: FDA-Public Use
  Company Number: IT-GLAXOSMITHKLINE-B0389572A

PATIENT
  Age: 47 Year
  Sex: Male

DRUGS (2)
  1. ZEFFIX [Suspect]
     Indication: HEPATIC CIRRHOSIS
     Dosage: 100MG PER DAY
     Dates: start: 20030515, end: 20050722
  2. ADEFOVIR [Concomitant]
     Indication: DRUG USE FOR UNKNOWN INDICATION
     Route: 048

REACTIONS (5)
  - COMA HEPATIC [None]
  - HEPATIC ENCEPHALOPATHY [None]
  - JAUNDICE [None]
  - PERITONITIS BACTERIAL [None]
  - RENAL FAILURE [None]
